FAERS Safety Report 4806661-7 (Version None)
Quarter: 2005Q4

REPORT INFORMATION
  Report Type: 
  Country: None (occurrence: None)
  Receive Date: 20051019
  Receipt Date: 20051004
  Transmission Date: 20060501
  Serious: Yes (Hospitalization)
  Sender: FDA-Public Use
  Company Number: USA0510109896

PATIENT
  Age: 30 Year
  Sex: Female

DRUGS (1)
  1. PROZAC [Suspect]
     Indication: DEPRESSION

REACTIONS (5)
  - ABNORMAL BEHAVIOUR [None]
  - CRYING [None]
  - DRUG INEFFECTIVE [None]
  - INAPPROPRIATE AFFECT [None]
  - INSOMNIA [None]
